FAERS Safety Report 5863437-X (Version None)
Quarter: 2008Q3

REPORT INFORMATION
  Report Type: 
  Country: None (occurrence: None)
  Receive Date: 20080828
  Receipt Date: 20080828
  Transmission Date: 20090109
  Serious: Yes (Hospitalization)
  Sender: FDA-Public Use
  Company Number: PHEH2001US04443

PATIENT
  Sex: Male
  Weight: 131.4 kg

DRUGS (1)
  1. DIOVAN T30230+ [Suspect]
     Indication: CARDIAC FAILURE CONGESTIVE
     Dosage: 40-160 MG, BID
     Dates: start: 20000523, end: 20001128

REACTIONS (5)
  - DYSPNOEA EXERTIONAL [None]
  - FATIGUE [None]
  - HYPERKALAEMIA [None]
  - NAUSEA [None]
  - RENAL FAILURE ACUTE [None]
